FAERS Safety Report 8388957-8 (Version None)
Quarter: 2012Q2

REPORT INFORMATION
  Report Type: 
  Country: None (occurrence: None)
  Receive Date: 20120528
  Receipt Date: 20120522
  Transmission Date: 20120825
  Serious: Yes (Hospitalization, Other)
  Sender: FDA-Public Use
  Company Number: US-AMGEN-USASP2012032045

PATIENT
  Age: 69 Year
  Sex: Female

DRUGS (1)
  1. ENBREL [Suspect]
     Indication: PSORIATIC ARTHROPATHY
     Dosage: 25 MG, EVERY 10-12 DAYS
     Route: 058
     Dates: start: 20030801

REACTIONS (19)
  - BLOOD PRESSURE DECREASED [None]
  - ATRIAL FIBRILLATION [None]
  - ASTHENIA [None]
  - SOMNOLENCE [None]
  - PSORIATIC ARTHROPATHY [None]
  - SPEECH DISORDER [None]
  - VOMITING [None]
  - FATIGUE [None]
  - ARTHROPOD BITE [None]
  - BURNING SENSATION [None]
  - HEART RATE DECREASED [None]
  - WALKING AID USER [None]
  - HAEMATEMESIS [None]
  - CEREBROVASCULAR ACCIDENT [None]
  - DEHYDRATION [None]
  - PRURITUS [None]
  - VISUAL IMPAIRMENT [None]
  - DYSARTHRIA [None]
  - MUSCULOSKELETAL DISCOMFORT [None]
